FAERS Safety Report 24954943 (Version 1)
Quarter: 2025Q1

REPORT INFORMATION
  Report Type: Spontaneous
  Country: US (occurrence: None)
  Receive Date: 20250211
  Receipt Date: 20250211
  Transmission Date: 20250409
  Serious: Yes (Hospitalization)
  Sender: FDA-CTU
  Company Number: None

PATIENT
  Age: 53 Year
  Sex: Female
  Weight: 62.6 kg

DRUGS (2)
  1. CARBOPLATIN [Suspect]
     Active Substance: CARBOPLATIN
     Dates: end: 20250115
  2. GEMCITABINE HYDROCHLORIDE [Suspect]
     Active Substance: GEMCITABINE HYDROCHLORIDE
     Dates: end: 20250115

REACTIONS (5)
  - Subarachnoid haemorrhage [None]
  - Gastrointestinal haemorrhage [None]
  - Breast cancer metastatic [None]
  - Thrombocytopenia [None]
  - Haemoglobin decreased [None]

NARRATIVE: CASE EVENT DATE: 20250124
